FAERS Safety Report 5803502-6 (Version None)
Quarter: 2008Q3

REPORT INFORMATION
  Report Type: 
  Country: None (occurrence: None)
  Receive Date: 20080708
  Receipt Date: 20080701
  Transmission Date: 20090109
  Serious: Yes (Hospitalization, Other)
  Sender: FDA-Public Use
  Company Number: GB-SANOFI-SYNTHELABO-D01200702799

PATIENT
  Sex: Male
  Weight: 101.8 kg

DRUGS (10)
  1. CHLORHEXIDINE GLUCONATE [Concomitant]
     Dates: start: 20070212
  2. DOMPERIDONE [Concomitant]
     Dates: start: 20070116
  3. MOVICOL [Concomitant]
     Dates: start: 20060501
  4. GRANISETRON HCL [Concomitant]
     Dates: start: 20070115
  5. DEXAMETHASONE [Concomitant]
     Dates: start: 20070115
  6. DEXAMETHASONE [Concomitant]
     Dates: start: 20070116
  7. SR57746 OR PLACEBO [Suspect]
     Indication: NEUROLOGICAL SYMPTOM
     Route: 048
     Dates: start: 20070115, end: 20070402
  8. LEUCOVORIN CALCIUM [Suspect]
     Route: 042
     Dates: start: 20070327, end: 20070327
  9. FLUOROURACIL [Suspect]
     Dosage: 400 MG/M?, IV BOLUS D1+D2 FOLLOWED BY 5-FU 2400 MG/M? OVER 46-HOUR CONTINUOUS INFUSION.
     Route: 042
     Dates: start: 20070327, end: 20070328
  10. OXALIPLATIN [Suspect]
     Route: 042
     Dates: start: 20070327, end: 20070327

REACTIONS (3)
  - ATRIAL FIBRILLATION [None]
  - PNEUMONIA [None]
  - PULMONARY EMBOLISM [None]
